FAERS Safety Report 20862437 (Version 2)
Quarter: 2022Q2

REPORT INFORMATION
  Report Type: Spontaneous
  Country: US (occurrence: US)
  Receive Date: 20220523
  Receipt Date: 20220526
  Transmission Date: 20220721
  Serious: No
  Sender: FDA-Public Use
  Company Number: US-009507513-2205USA005678

PATIENT
  Age: 20 Year
  Sex: Female

DRUGS (11)
  1. DIFICID [Suspect]
     Active Substance: FIDAXOMICIN
     Indication: Clostridium difficile infection
     Dosage: 1 TABLET, ONCE DAILY
     Route: 048
     Dates: start: 20220513
  2. DIFICID [Suspect]
     Active Substance: FIDAXOMICIN
     Dosage: 2 TABLETS, ONCE DAILY
     Dates: start: 20220514
  3. BACLOFEN [Concomitant]
     Active Substance: BACLOFEN
  4. PEPCID [Concomitant]
     Active Substance: FAMOTIDINE
  5. PYRIDOSTIGMINE [Concomitant]
     Active Substance: PYRIDOSTIGMINE
  6. CORLANOR [Concomitant]
     Active Substance: IVABRADINE HYDROCHLORIDE
  7. NORETHINDRONE [Concomitant]
     Active Substance: NORETHINDRONE
  8. LEXAPRO [Concomitant]
     Active Substance: ESCITALOPRAM OXALATE
  9. CLOMIDIN [CLOMIFENE CITRATE] [Concomitant]
  10. NABUMETONE [Concomitant]
     Active Substance: NABUMETONE
  11. ZOFRAN [Concomitant]
     Active Substance: ONDANSETRON HYDROCHLORIDE

REACTIONS (2)
  - Underdose [Unknown]
  - Product packaging quantity issue [Unknown]

NARRATIVE: CASE EVENT DATE: 20220513
